FAERS Safety Report 9425390 (Version 2)
Quarter: 2013Q4

REPORT INFORMATION
  Report Type: Spontaneous
  Country: GB (occurrence: GB)
  Receive Date: 20130729
  Receipt Date: 20131118
  Transmission Date: 20140711
  Serious: Yes (Disabling)
  Sender: FDA-Public Use
  Company Number: GB-TEVA-420180ISR

PATIENT
  Age: 66 Year
  Sex: Female
  Weight: 87.08 kg

DRUGS (11)
  1. MIRTAZAPINE [Suspect]
     Indication: DEPRESSION
     Route: 048
     Dates: start: 20130627, end: 20130628
  2. WARFARIN [Concomitant]
  3. TOLTERODINE [Concomitant]
     Dosage: MODIFIED-RELEASE TABLET
  4. PREDNISOLONE [Concomitant]
  5. LOSARTAN AND HYDROCHLOROTHIAZIDE [Concomitant]
  6. PARACETAMOL [Concomitant]
  7. LEVOTHYROXINE [Concomitant]
  8. AMLODIPINE [Concomitant]
  9. ADCAL-D3 [Concomitant]
  10. SALBUTAMOL [Concomitant]
  11. TIOTROPIUM BROMIDE [Concomitant]

REACTIONS (5)
  - Transient ischaemic attack [Recovering/Resolving]
  - Dysarthria [Not Recovered/Not Resolved]
  - Dizziness [Not Recovered/Not Resolved]
  - Cough [Not Recovered/Not Resolved]
  - Speech disorder [Not Recovered/Not Resolved]
